FAERS Safety Report 4732648-9 (Version None)
Quarter: 2005Q3

REPORT INFORMATION
  Report Type: 
  Country: None (occurrence: None)
  Receive Date: 20050802
  Receipt Date: 20050802
  Transmission Date: 20060218
  Serious: Yes (Hospitalization)
  Sender: FDA-Public Use
  Company Number: None

PATIENT
  Sex: Male
  Weight: 88.905 kg

DRUGS (9)
  1. CIPRO [Suspect]
     Indication: URINARY TRACT INFECTION
     Dosage: 400MG IV BID
     Route: 042
     Dates: start: 20050320, end: 20050323
  2. AZATHIOPRINE [Concomitant]
  3. FINASTERIDE [Concomitant]
  4. FUROSEMIDE [Concomitant]
  5. LOPERAMIDE HCL [Concomitant]
  6. MORPHINE [Concomitant]
  7. RANITIDINE [Concomitant]
  8. PREDNISONE [Concomitant]
  9. PROPOFOL [Concomitant]

REACTIONS (2)
  - CONDITION AGGRAVATED [None]
  - MYASTHENIA GRAVIS [None]
